FAERS Safety Report 5456341-2 (Version None)
Quarter: 2007Q3

REPORT INFORMATION
  Report Type: 
  Country: None (occurrence: None)
  Receive Date: 20070918
  Receipt Date: 20070228
  Transmission Date: 20080115
  Serious: Yes (Other)
  Sender: FDA-Public Use
  Company Number: US-ASTRAZENECA-2006UW24855

PATIENT
  Age: 535 Month
  Sex: Male
  Weight: 84.5 kg

DRUGS (3)
  1. SEROQUEL [Suspect]
     Indication: DEPRESSION
     Dosage: 100-200MG
     Route: 048
     Dates: start: 20030801
  2. ZYPREXA [Concomitant]
     Dates: start: 20031224
  3. BUPROPION HCL [Concomitant]
     Dates: start: 20040728

REACTIONS (2)
  - PANCREATITIS [None]
  - TYPE 1 DIABETES MELLITUS [None]
